FAERS Safety Report 5002647-0 (Version None)
Quarter: 2006Q2

REPORT INFORMATION
  Report Type: 
  Country: None (occurrence: None)
  Receive Date: 20060510
  Receipt Date: 20060426
  Transmission Date: 20061013
  Serious: Yes (Death)
  Sender: FDA-Public Use
  Company Number: B0419766A

PATIENT
  Age: 34 Year
  Sex: Female
  Weight: 85.8206 kg

DRUGS (2)
  1. PAXIL [Suspect]
     Dosage: 20 MG / SEE DOSAGE TEXT / ORAL
     Route: 048
  2. MOCLOBEMIDE TABLET (MOCLOBEMIDE) [Suspect]
     Dosage: 300 MG / SEE DOSAGE TEXT / ORAL
     Route: 048

REACTIONS (10)
  - CARDIO-RESPIRATORY ARREST [None]
  - DRUG TOXICITY [None]
  - HYPERGLYCAEMIA [None]
  - INCORRECT DOSE ADMINISTERED [None]
  - METABOLIC ACIDOSIS [None]
  - MULTI-ORGAN FAILURE [None]
  - RESPIRATORY ACIDOSIS [None]
  - SEROTONIN SYNDROME [None]
  - SINUS TACHYCARDIA [None]
  - THERAPY NON-RESPONDER [None]
